APPROVED DRUG PRODUCT: CEPHALEXIN
Active Ingredient: CEPHALEXIN
Strength: EQ 250MG BASE
Dosage Form/Route: CAPSULE;ORAL
Application: A062118 | Product #001
Applicant: FACTA FARMACEUTICI SPA
Approved: Approved Prior to Jan 1, 1982 | RLD: No | RS: No | Type: DISCN